APPROVED DRUG PRODUCT: EPTIFIBATIDE
Active Ingredient: EPTIFIBATIDE
Strength: 75MG/100ML
Dosage Form/Route: INJECTABLE;INJECTION
Application: A204589 | Product #002
Applicant: RISING PHARMA HOLDINGS INC
Approved: Apr 18, 2017 | RLD: No | RS: No | Type: DISCN